FAERS Safety Report 11058251 (Version 3)
Quarter: 2015Q2

REPORT INFORMATION
  Report Type: Spontaneous
  Country: GB (occurrence: GB)
  Receive Date: 20150423
  Receipt Date: 20150611
  Transmission Date: 20150821
  Serious: Yes (Death, Hospitalization, Other)
  Sender: FDA-Public Use
  Company Number: GB-TEVA-556404ACC

PATIENT
  Age: 72 Year
  Sex: Male
  Weight: 82.3 kg

DRUGS (13)
  1. GEMZAR [Suspect]
     Active Substance: GEMCITABINE HYDROCHLORIDE
     Indication: BLADDER CANCER STAGE III
     Dosage: 2128 MG
     Route: 042
     Dates: start: 20150210, end: 20150210
  2. CARBOPLATIN. [Suspect]
     Active Substance: CARBOPLATIN
     Indication: BLADDER CANCER STAGE III
     Dosage: 350 MG
     Route: 042
     Dates: start: 20150210, end: 20150210
  3. PARACETAMOL [Concomitant]
     Active Substance: ACETAMINOPHEN
  4. BISACODYL. [Concomitant]
     Active Substance: BISACODYL
  5. GRANISETRON [Concomitant]
     Active Substance: GRANISETRON
  6. OMEPRAZOLE. [Concomitant]
     Active Substance: OMEPRAZOLE
  7. AMLODIPINE [Concomitant]
     Active Substance: AMLODIPINE BESYLATE
  8. DEXAMETHASONE. [Concomitant]
     Active Substance: DEXAMETHASONE
  9. LEVOMEPROMAZINE [Concomitant]
     Active Substance: LEVOMEPROMAZINE
  10. MACROGOL [Concomitant]
     Active Substance: POLYETHYLENE GLYCOLS
  11. ALFENTANIL [Concomitant]
     Active Substance: ALFENTANIL
  12. METOCLOPRAMIDE. [Concomitant]
     Active Substance: METOCLOPRAMIDE
  13. FENTANYL. [Concomitant]
     Active Substance: FENTANYL

REACTIONS (11)
  - Neutropenia [Not Recovered/Not Resolved]
  - Thrombocytopenia [Not Recovered/Not Resolved]
  - Dehydration [Not Recovered/Not Resolved]
  - Urosepsis [Fatal]
  - Vomiting [Not Recovered/Not Resolved]
  - Hepatic function abnormal [Not Recovered/Not Resolved]
  - Acute kidney injury [Fatal]
  - Hepatic failure [Fatal]
  - Pyrexia [Not Recovered/Not Resolved]
  - Toxicity to various agents [Fatal]
  - Nausea [Not Recovered/Not Resolved]

NARRATIVE: CASE EVENT DATE: 20150211
